FAERS Safety Report 25597132 (Version 1)
Quarter: 2025Q3

REPORT INFORMATION
  Report Type: Spontaneous
  Country: EU (occurrence: EU)
  Receive Date: 20250723
  Receipt Date: 20250723
  Transmission Date: 20251020
  Serious: Yes (Life-Threatening, Hospitalization)
  Sender: TEVA
  Company Number: None

PATIENT
  Age: 51 Year
  Sex: Female

DRUGS (6)
  1. LORMETAZEPAM [Suspect]
     Active Substance: LORMETAZEPAM
     Indication: Bipolar disorder
     Dosage: LORMETAZEPAM (88A)
     Route: 048
     Dates: start: 20250214, end: 20250426
  2. ZONISAMIDE [Suspect]
     Active Substance: ZONISAMIDE
     Indication: Bipolar disorder
     Dosage: ZONISAMIDE (7004A)
     Route: 048
     Dates: start: 20250412, end: 20250426
  3. QUETIAPINE [Suspect]
     Active Substance: QUETIAPINE
     Indication: Bipolar disorder
     Dosage: QUETIAPINE (1136A)
     Route: 048
     Dates: start: 20250412, end: 20250426
  4. ARIPIPRAZOLE [Suspect]
     Active Substance: ARIPIPRAZOLE
     Indication: Bipolar disorder
     Dosage: ARIPIPRAZOLE (2933A)
     Route: 048
     Dates: start: 20250412, end: 20250426
  5. TOPIRAMATE [Suspect]
     Active Substance: TOPIRAMATE
     Indication: Bipolar disorder
     Dosage: TOPIRAMATE (7245A)
     Route: 048
     Dates: start: 20250412, end: 20250426
  6. CLOMETHIAZOLE [Suspect]
     Active Substance: CLOMETHIAZOLE
     Indication: Bipolar disorder
     Route: 048
     Dates: start: 202502, end: 20250426

REACTIONS (2)
  - Neuroleptic malignant syndrome [Recovered/Resolved]
  - Acute kidney injury [Recovered/Resolved]

NARRATIVE: CASE EVENT DATE: 20250426
